FAERS Safety Report 8621799-4 (Version None)
Quarter: 2012Q3

REPORT INFORMATION
  Report Type: 
  Country: None (occurrence: None)
  Receive Date: 20120821
  Receipt Date: 20120821
  Transmission Date: 20120928
  Serious: Yes (Other)
  Sender: FDA-Public Use
  Company Number: None

PATIENT
  Age: 47 Year
  Sex: Male
  Weight: 70.3075 kg

DRUGS (2)
  1. LYRICA [Suspect]
     Indication: PROCEDURAL PAIN
     Dosage: 100 MG 2 TIMES DAILY PO
     Route: 048
     Dates: start: 20120815, end: 20120819
  2. LYRICA [Suspect]
     Indication: FIBROMYALGIA
     Dosage: 100 MG 2 TIMES DAILY PO
     Route: 048
     Dates: start: 20120815, end: 20120819

REACTIONS (1)
  - ERECTILE DYSFUNCTION [None]
